FAERS Safety Report 5398636-7 (Version None)
Quarter: 2007Q3

REPORT INFORMATION
  Report Type: 
  Country: None (occurrence: None)
  Receive Date: 20070726
  Receipt Date: 20060614
  Transmission Date: 20080115
  Serious: No
  Sender: FDA-Public Use
  Company Number: US-AMGEN-KDL183610

PATIENT
  Sex: Female
  Weight: 74.5 kg

DRUGS (10)
  1. PROCRIT [Suspect]
     Indication: ANAEMIA OF MALIGNANT DISEASE
     Dates: start: 20060401
  2. ETOPOSIDE [Concomitant]
  3. ETOPOSIDE [Concomitant]
  4. DILAUDID [Concomitant]
  5. PROZAC [Concomitant]
  6. METFORMIN HCL [Concomitant]
  7. XANAX [Concomitant]
  8. CARBOPLATIN [Concomitant]
  9. GLYBURIDE [Concomitant]
  10. PREVACID [Concomitant]

REACTIONS (5)
  - DYSGRAPHIA [None]
  - EYELID DISORDER [None]
  - FATIGUE [None]
  - MEMORY IMPAIRMENT [None]
  - SOMNOLENCE [None]
